FAERS Safety Report 8916099 (Version 2)
Quarter: 2012Q4

REPORT INFORMATION
  Report Type: 
  Country: GB (occurrence: GB)
  Receive Date: 20121120
  Receipt Date: 20121130
  Transmission Date: 20130627
  Serious: Yes (Disabling, Other)
  Sender: FDA-Public Use
  Company Number: GB-WATSON-2012-19662

PATIENT
  Age: 57 Year
  Sex: Female
  Weight: 66 kg

DRUGS (3)
  1. CLARITHROMYCIN (UNKNOWN) [Suspect]
     Indication: LOWER RESPIRATORY TRACT INFECTION
     Dosage: 500 mg, bid
     Route: 048
     Dates: start: 20121015, end: 20121016
  2. TAMOXIFEN [Concomitant]
     Indication: BREAST CANCER
     Dosage: 20 mg, daily in the morning
     Route: 048
     Dates: start: 20000729
  3. SOLIFENACIN [Suspect]
     Indication: INCONTINENCE
     Dosage: 5 mg, daily in the morning
     Route: 048
     Dates: start: 20120430

REACTIONS (3)
  - Acute generalised exanthematous pustulosis [Not Recovered/Not Resolved]
  - Deformity [Not Recovered/Not Resolved]
  - Malaise [Not Recovered/Not Resolved]
